FAERS Safety Report 16874723 (Version 6)
Quarter: 2020Q1

REPORT INFORMATION
  Report Type: Report from Study
  Country: BR (occurrence: BR)
  Receive Date: 20191001
  Receipt Date: 20200309
  Transmission Date: 20200409
  Serious: Yes (Hospitalization, Other)
  Sender: FDA-Public Use
  Company Number: PHHY2019BR157691

PATIENT
  Age: 59 Year
  Sex: Male

DRUGS (11)
  1. LAMITOR [Concomitant]
     Active Substance: LAMOTRIGINE
     Indication: PRODUCT USED FOR UNKNOWN INDICATION
     Dosage: UNK UNK, QD (IN THE NIGHT)
     Route: 065
  2. SOMALGIN CARDIO [Concomitant]
     Active Substance: ASPIRIN\DIHYDROXYALUMINUM AMINOACETATE ANHYDROUS\MAGNESIUM CARBONATE
     Indication: PRODUCT USED FOR UNKNOWN INDICATION
     Dosage: UNK UNK, QD (IN THE LUNCH)
     Route: 065
  3. LIPITOR [Concomitant]
     Active Substance: ATORVASTATIN CALCIUM
     Indication: PRODUCT USED FOR UNKNOWN INDICATION
     Dosage: UNK UNK, QD (AFTER LUNCH0
     Route: 065
  4. COSENTYX [Suspect]
     Active Substance: SECUKINUMAB
     Dosage: UNK
     Route: 065
     Dates: start: 20190803
  5. XIGDUO XR [Concomitant]
     Active Substance: DAPAGLIFLOZIN PROPANEDIOL\METFORMIN HYDROCHLORIDE
     Indication: PRODUCT USED FOR UNKNOWN INDICATION
     Dosage: UNK UNK, QD (IN THE MORNING)
     Route: 065
  6. COSENTYX [Suspect]
     Active Substance: SECUKINUMAB
     Dosage: 300 MG, UNKNOWN
     Route: 065
     Dates: start: 20190902
  7. COSENTYX [Suspect]
     Active Substance: SECUKINUMAB
     Indication: PSORIASIS
     Dosage: UNK
     Route: 065
     Dates: start: 20190409
  8. COSENTYX [Suspect]
     Active Substance: SECUKINUMAB
     Dosage: UNK
     Route: 065
     Dates: start: 20190702
  9. VASOPRIL [Concomitant]
     Indication: PRODUCT USED FOR UNKNOWN INDICATION
     Dosage: UNK UNK, QD (IN THE NIGHT)
     Route: 065
  10. XARELTO [Concomitant]
     Active Substance: RIVAROXABAN
     Indication: PRODUCT USED FOR UNKNOWN INDICATION
     Dosage: UNK
     Route: 065
  11. BISOPROLOL FUMARATE. [Concomitant]
     Active Substance: BISOPROLOL FUMARATE
     Indication: PRODUCT USED FOR UNKNOWN INDICATION
     Dosage: 1 DF, QD (IN THE MORNING)
     Route: 065

REACTIONS (28)
  - Renal cyst [Unknown]
  - Klebsiella infection [Unknown]
  - Abscess neck [Unknown]
  - Pyrexia [Unknown]
  - Asthenia [Unknown]
  - Swelling [Unknown]
  - Mediastinal disorder [Unknown]
  - Musculoskeletal stiffness [Unknown]
  - Lemierre syndrome [Unknown]
  - Thrombophlebitis [Unknown]
  - Dehydration [Unknown]
  - Oedema [Recovered/Resolved]
  - Pleural effusion [Unknown]
  - Atelectasis [Unknown]
  - Urine analysis abnormal [Unknown]
  - Bacterial infection [Unknown]
  - Chills [Unknown]
  - Cough [Unknown]
  - Pain [Unknown]
  - Spinal disorder [Unknown]
  - Haemoglobin decreased [Unknown]
  - Neck pain [Unknown]
  - Tremor [Unknown]
  - Diarrhoea [Unknown]
  - Phlebitis [Unknown]
  - Arteriosclerosis [Unknown]
  - Paratracheal lymphadenopathy [Unknown]
  - Vomiting [Recovered/Resolved]

NARRATIVE: CASE EVENT DATE: 20190920
